FAERS Safety Report 19353322 (Version 4)
Quarter: 2021Q3

REPORT INFORMATION
  Report Type: Report from Study
  Country: None (occurrence: FK)
  Receive Date: 20210601
  Receipt Date: 20210706
  Transmission Date: 20211014
  Serious: Yes (Hospitalization)
  Sender: FDA-Public Use
  Company Number: FR-ABBVIE-21K-056-3924547-00

PATIENT
  Sex: Male

DRUGS (5)
  1. DUODOPA [Suspect]
     Active Substance: CARBIDOPA\LEVODOPA
     Indication: PARKINSON^S DISEASE
     Dosage: CONTINUOUS FLOW RATE DURING THE DAY:  7 ML/H
     Route: 050
     Dates: start: 202103, end: 202105
  2. DUODOPA [Suspect]
     Active Substance: CARBIDOPA\LEVODOPA
     Dosage: MORNING DOSE 12 ML, CONTINUOUS FLOW RATE DURING THE DAY: 6.0 ML/H
     Route: 050
     Dates: start: 20210525, end: 20210527
  3. DUODOPA [Suspect]
     Active Substance: CARBIDOPA\LEVODOPA
     Dosage: CONTINUOUS FLOW RATE DURING THE DAY: 6.5 ML/H
     Route: 050
     Dates: start: 202105, end: 20210525
  4. DUODOPA [Suspect]
     Active Substance: CARBIDOPA\LEVODOPA
     Dosage: MORNING DOSE 12ML, CONTINUOUS FLOW RATE DURING THE DAY: 7 ML/H,?NO ADDITIONAL DOSE
     Route: 050
     Dates: start: 20210527, end: 2021
  5. DUODOPA [Suspect]
     Active Substance: CARBIDOPA\LEVODOPA
     Dosage: MORNING DOSE 10ML, CONTINUOUS FLOW RATE DURING THE DAY: 6.5 ML/H
     Route: 050
     Dates: start: 2021

REACTIONS (6)
  - Fracture displacement [Unknown]
  - Fall [Unknown]
  - Stoma site discharge [Not Recovered/Not Resolved]
  - Dyskinesia [Unknown]
  - Device issue [Unknown]
  - Device leakage [Not Recovered/Not Resolved]

NARRATIVE: CASE EVENT DATE: 2021
